FAERS Safety Report 11911152 (Version 1)
Quarter: 2016Q1

REPORT INFORMATION
  Report Type: Spontaneous
  Country: US (occurrence: US)
  Receive Date: 20160112
  Receipt Date: 20160112
  Transmission Date: 20160526
  Serious: No
  Sender: FDA-Public Use
  Company Number: US-TARO-2015TAR00504

PATIENT
  Age: 42 Year
  Sex: Female
  Weight: 79.82 kg

DRUGS (1)
  1. KETOCONAZOLE CREAM 2% [Suspect]
     Active Substance: KETOCONAZOLE
     Indication: TINEA INFECTION
     Dosage: 1 DOSAGE UNITS, 2X/DAY
     Route: 061
     Dates: start: 201503, end: 201504

REACTIONS (9)
  - Skin exfoliation [Unknown]
  - Application site acne [Not Recovered/Not Resolved]
  - Skin irritation [Unknown]
  - Paraesthesia [Recovered/Resolved]
  - Thermal burn [Unknown]
  - Application site vesicles [Not Recovered/Not Resolved]
  - Pyrexia [Unknown]
  - Erythema [Unknown]
  - Hyperhidrosis [Recovered/Resolved]

NARRATIVE: CASE EVENT DATE: 2015
